FAERS Safety Report 7722434-X (Version None)
Quarter: 2011Q3

REPORT INFORMATION
  Report Type: 
  Country: None (occurrence: None)
  Receive Date: 20110831
  Receipt Date: 20110825
  Transmission Date: 20111222
  Serious: Yes (Hospitalization)
  Sender: FDA-Public Use
  Company Number: CH-PFIZER INC-2011197418

PATIENT
  Age: 48 Year
  Sex: Male

DRUGS (3)
  1. CLINDAMYCIN HCL [Suspect]
     Indication: WOUND INFECTION
     Dosage: 300 MG, 3X/DAY
     Route: 048
     Dates: start: 20110717, end: 20110727
  2. AUGMENTIN '125' [Concomitant]
     Indication: WOUND INFECTION
     Dosage: UNK
     Dates: start: 20110526, end: 20110605
  3. CIPROFLAXACIN [Suspect]
     Indication: WOUND INFECTION
     Dosage: 500 MG, 2X/DAY
     Route: 048
     Dates: start: 20110717, end: 20110727

REACTIONS (5)
  - RASH MACULO-PAPULAR [None]
  - OEDEMA PERIPHERAL [None]
  - GENERAL PHYSICAL HEALTH DETERIORATION [None]
  - ERYTHEMA [None]
  - PYREXIA [None]
